FAERS Safety Report 19361352 (Version 1)
Quarter: 2021Q2

REPORT INFORMATION
  Report Type: Spontaneous
  Country: JP (occurrence: JP)
  Receive Date: 20210603
  Receipt Date: 20210603
  Transmission Date: 20210717
  Serious: Yes (Hospitalization, Other)
  Sender: FDA-Public Use
  Company Number: JP-SA-2021SA180717

PATIENT
  Age: 28 Year
  Sex: Female

DRUGS (3)
  1. INSULIN LISPRO BS INJECTION SOLOSTAR HU [SANOFI] [Suspect]
     Active Substance: INSULIN LISPRO
     Indication: SUICIDE ATTEMPT
     Dosage: 300 UNITS
     Route: 058
  2. METFORMIN HYDROCHLORIDE. [Suspect]
     Active Substance: METFORMIN HYDROCHLORIDE
     Indication: SUICIDE ATTEMPT
     Dosage: APPROXIMATELY 87500 MG
     Route: 048
  3. LANTUS SOLOSTAR [Suspect]
     Active Substance: INSULIN GLARGINE
     Indication: SUICIDE ATTEMPT
     Dosage: 450 UNITS
     Route: 058

REACTIONS (3)
  - Altered state of consciousness [Recovering/Resolving]
  - Intentional overdose [Recovering/Resolving]
  - Lactic acidosis [Recovering/Resolving]
